FAERS Safety Report 5223962-1 (Version None)
Quarter: 2007Q1

REPORT INFORMATION
  Report Type: 
  Country: None (occurrence: None)
  Receive Date: 20070130
  Receipt Date: 20070129
  Transmission Date: 20070707
  Serious: Yes (Other)
  Sender: FDA-Public Use
  Company Number: US-GLAXOSMITHKLINE-A0637439A

PATIENT
  Sex: Female

DRUGS (5)
  1. LAMICTAL [Suspect]
     Route: 048
  2. DILANTIN [Concomitant]
  3. TEGRETOL [Concomitant]
  4. NEURONTIN [Concomitant]
  5. KEPPRA [Concomitant]

REACTIONS (5)
  - CONVULSION [None]
  - HEADACHE [None]
  - INSOMNIA [None]
  - PALPITATIONS [None]
  - ROAD TRAFFIC ACCIDENT [None]
